FAERS Safety Report 25417463 (Version 4)
Quarter: 2025Q3

REPORT INFORMATION
  Report Type: Report from Study
  Country: US (occurrence: US)
  Receive Date: 20250610
  Receipt Date: 20250922
  Transmission Date: 20251020
  Serious: Yes (Hospitalization, Other)
  Sender: AUROBINDO
  Company Number: US-AUROBINDO-AUR-APL-2025-019028

PATIENT
  Age: 70 Year
  Sex: Female
  Weight: 68.2 kg

DRUGS (54)
  1. BELEODAQ [Suspect]
     Active Substance: BELINOSTAT
     Indication: Product used for unknown indication
     Route: 065
  2. FOLOTYN [Suspect]
     Active Substance: PRALATREXATE
     Indication: Product used for unknown indication
     Route: 065
  3. OXYCODONE [Concomitant]
     Active Substance: OXYCODONE
     Indication: Osteoarthritis
     Route: 048
     Dates: start: 20250313
  4. OXYCODONE [Concomitant]
     Active Substance: OXYCODONE
     Indication: Ligament sprain
     Route: 048
     Dates: start: 20250313
  5. OXYCODONE [Concomitant]
     Active Substance: OXYCODONE
     Indication: Abdominal pain
     Dosage: 5 MILLIGRAM, EVERY FOUR HOUR
     Route: 048
     Dates: start: 20250324
  6. MIRTAZAPINE [Concomitant]
     Active Substance: MIRTAZAPINE
     Indication: Osteoarthritis
     Route: 048
     Dates: start: 20250303
  7. MIRTAZAPINE [Concomitant]
     Active Substance: MIRTAZAPINE
     Indication: Insomnia
  8. METHADONE [Concomitant]
     Active Substance: METHADONE HYDROCHLORIDE
     Indication: Neoplasm prophylaxis
     Route: 048
     Dates: start: 20250313
  9. CYCLOBENZAPRINE [Concomitant]
     Active Substance: CYCLOBENZAPRINE
     Indication: Muscle spasms
     Route: 048
     Dates: start: 20180817
  10. CYCLOBENZAPRINE [Concomitant]
     Active Substance: CYCLOBENZAPRINE
     Indication: Ligament sprain
     Dosage: 5 MILLIGRAM, ONCE A DAY
     Route: 048
     Dates: start: 20240816, end: 20250125
  11. ATORVASTATIN [Concomitant]
     Active Substance: ATORVASTATIN
     Indication: Type V hyperlipidaemia
     Route: 048
     Dates: start: 20190225
  12. AMLODIPINE [Concomitant]
     Active Substance: AMLODIPINE BESYLATE
     Indication: Hypertension
     Route: 048
     Dates: start: 20200727
  13. LINACLOTIDE [Concomitant]
     Active Substance: LINACLOTIDE
     Indication: Constipation
     Route: 065
     Dates: start: 20250303, end: 20250304
  14. LUBIPROSTONE [Concomitant]
     Active Substance: LUBIPROSTONE
     Indication: Constipation
     Dosage: 24 MILLIGRAM, TWO TIMES A DAY
     Route: 048
     Dates: start: 20250304, end: 20250313
  15. SENNA TABS [Concomitant]
     Active Substance: SENNOSIDES A AND B
     Indication: Nausea
     Dosage: 8.6 MILLIGRAM, TWO TIMES A DAY
     Route: 048
     Dates: start: 20250307
  16. PROMETHAZINE [Concomitant]
     Active Substance: PROMETHAZINE HYDROCHLORIDE
     Indication: Nausea
     Route: 048
     Dates: start: 20250225
  17. POTASSIUM CHLORIDE [Concomitant]
     Active Substance: POTASSIUM CHLORIDE
     Indication: Hypokalaemia
     Dosage: 10 MILLIEQUIVALENT, ONCE A DAY
     Route: 048
     Dates: start: 20250303, end: 20250328
  18. PANTOPRAZOLE [Concomitant]
     Active Substance: PANTOPRAZOLE
     Indication: Gastrooesophageal reflux disease
     Dosage: 40 MILLIGRAM, TWO TIMES A DAY
     Route: 065
     Dates: start: 20220228
  19. MAGNESIUM OXIDE [Concomitant]
     Active Substance: MAGNESIUM OXIDE
     Indication: Blood magnesium decreased
     Dosage: 400 MILLIGRAM, ONCE A DAY
     Route: 048
     Dates: start: 20250225
  20. LACTULOSE [Concomitant]
     Active Substance: LACTULOSE
     Indication: Constipation
     Route: 048
     Dates: start: 20250307
  21. PREDNISONE [Concomitant]
     Active Substance: PREDNISONE
     Indication: Abdominal pain
     Dosage: 100 MILLIGRAM, ONCE A DAY
     Route: 048
     Dates: start: 20250321, end: 20250328
  22. PREDNISONE [Concomitant]
     Active Substance: PREDNISONE
     Indication: Abdominal distension
  23. ALLOPURINOL [Concomitant]
     Active Substance: ALLOPURINOL
     Indication: Hyperuricaemia
     Dosage: 100 MILLIGRAM, ONCE A DAY
     Route: 048
     Dates: start: 20250321, end: 20250403
  24. ALLOPURINOL [Concomitant]
     Active Substance: ALLOPURINOL
     Dosage: 2 MILLIGRAM, ONCE A DAY
     Route: 042
     Dates: start: 20250325, end: 20250328
  25. FOLIC ACID [Concomitant]
     Active Substance: FOLIC ACID
     Indication: Adverse drug reaction
     Dosage: 1 MILLIGRAM, ONCE A DAY
     Route: 065
     Dates: start: 20250318
  26. ENOXAPARIN [Concomitant]
     Active Substance: ENOXAPARIN
     Indication: Prophylaxis
     Dosage: 40 MILLIGRAM, ONCE A DAY
     Route: 058
     Dates: start: 20250324, end: 20250327
  27. HYDROMORPHONE [Concomitant]
     Active Substance: HYDROMORPHONE
     Indication: Solid organ transplant
     Dosage: 2 MILLIGRAM, ONCE A DAY
     Route: 058
     Dates: start: 20250324, end: 20250324
  28. HYDROMORPHONE [Concomitant]
     Active Substance: HYDROMORPHONE
     Dosage: 0.5 MILLIGRAM, ONCE A DAY
     Route: 042
     Dates: start: 20250326, end: 20250326
  29. BUDESONIDE [Concomitant]
     Active Substance: BUDESONIDE
     Indication: Abdominal pain
     Dosage: 3 MILLIGRAM, 3 TIMES A DAY
     Route: 048
     Dates: start: 20250219
  30. BUDESONIDE [Concomitant]
     Active Substance: BUDESONIDE
     Indication: Osteoarthritis
     Dosage: 9 MILLIGRAM, ONCE A DAY
     Route: 048
     Dates: start: 20250325, end: 20250328
  31. BUDESONIDE [Concomitant]
     Active Substance: BUDESONIDE
     Indication: Peripheral T-cell lymphoma unspecified
  32. RASBURICASE [Concomitant]
     Active Substance: RASBURICASE
     Indication: Peripheral T-cell lymphoma unspecified
     Dosage: 6 MILLIGRAM, ONCE A DAY
     Route: 042
     Dates: start: 20250325, end: 20250325
  33. RASBURICASE [Concomitant]
     Active Substance: RASBURICASE
     Indication: Hyperuricaemia
  34. ONDANSETRON [Concomitant]
     Active Substance: ONDANSETRON
     Indication: Peripheral T-cell lymphoma unspecified
     Dosage: 24 MILLIGRAM, ONCE A DAY
     Route: 048
     Dates: start: 20250325, end: 20250325
  35. ONDANSETRON [Concomitant]
     Active Substance: ONDANSETRON
     Indication: Solid organ transplant
  36. OLANZAPINE [Concomitant]
     Active Substance: OLANZAPINE
     Indication: Peripheral T-cell lymphoma unspecified
     Dosage: 5 MILLIGRAM, ONCE A DAY
     Route: 048
     Dates: start: 20250325, end: 20250325
  37. OLANZAPINE [Concomitant]
     Active Substance: OLANZAPINE
     Indication: Weight decreased
     Dosage: 2.5 MILLIGRAM, ONCE A DAY
     Route: 048
     Dates: start: 20250129, end: 20250219
  38. OLANZAPINE [Concomitant]
     Active Substance: OLANZAPINE
     Indication: Abdominal pain
  39. VINCRISTINE [Concomitant]
     Active Substance: VINCRISTINE
     Indication: Peripheral T-cell lymphoma unspecified
     Dosage: 2 MILLIGRAM, ONCE A DAY
     Route: 042
     Dates: start: 20250325, end: 20250325
  40. VINCRISTINE [Concomitant]
     Active Substance: VINCRISTINE
     Indication: Solid organ transplant
  41. FOSAPREPITANT [Concomitant]
     Active Substance: FOSAPREPITANT
     Indication: Peripheral T-cell lymphoma unspecified
     Dosage: 150 MILLIGRAM, ONCE A DAY
     Route: 042
     Dates: start: 20250325, end: 20250325
  42. DOXORUBICIN [Concomitant]
     Active Substance: DOXORUBICIN
     Indication: Peripheral T-cell lymphoma unspecified
     Route: 042
     Dates: start: 20250325, end: 20250325
  43. CYCLOPHOSPHAMIDE [Concomitant]
     Active Substance: CYCLOPHOSPHAMIDE
     Indication: Peripheral T-cell lymphoma unspecified
     Route: 048
     Dates: start: 20250325, end: 20250325
  44. SODIUM CHLORIDE [Concomitant]
     Active Substance: SODIUM CHLORIDE
     Indication: Peripheral T-cell lymphoma unspecified
     Dosage: 100 MILLILITER, ONCE A DAY
     Route: 042
     Dates: start: 20250325, end: 20250325
  45. SODIUM BICARBONATE [Concomitant]
     Active Substance: SODIUM BICARBONATE
     Indication: Dry mouth
     Dosage: UNK UNK, 3 TIMES A DAY(15-30 ML)
     Route: 065
     Dates: start: 20250326
  46. SODIUM ZIRCONIUM CYCLOSILICATE [Concomitant]
     Active Substance: SODIUM ZIRCONIUM CYCLOSILICATE
     Indication: Hypokalaemia
     Route: 048
     Dates: start: 20250327, end: 20250327
  47. FLUTICASONE [Concomitant]
     Active Substance: FLUTICASONE
     Indication: Rhinitis allergic
     Dates: start: 20190225, end: 20190304
  48. FLUTICASONE [Concomitant]
     Active Substance: FLUTICASONE
     Indication: Seasonal allergy
     Dosage: 50 MICROGRAM, ONCE A DAY
     Dates: start: 20200520, end: 20220713
  49. ROPIVACAINE [Concomitant]
     Active Substance: ROPIVACAINE
     Indication: Arthropathy
     Route: 030
     Dates: start: 20211109, end: 20211109
  50. MELOXICAM [Concomitant]
     Active Substance: MELOXICAM
     Indication: Osteoarthritis
     Route: 048
     Dates: start: 20220808, end: 20230221
  51. NAPROXEN [Concomitant]
     Active Substance: NAPROXEN
     Indication: Ligament sprain
     Dosage: 500 MILLIGRAM, TWO TIMES A DAY
     Route: 048
     Dates: start: 20180709, end: 20220228
  52. METHYLPREDNISOLONE ACETATE [Concomitant]
     Active Substance: METHYLPREDNISOLONE ACETATE
     Indication: Arthropathy
     Dosage: 80 MILLIGRAM, ONCE A DAY
     Route: 030
     Dates: start: 20211109, end: 20211109
  53. CALCIUM CARBONATE\CHOLECALCIFEROL [Concomitant]
     Active Substance: CALCIUM CARBONATE\CHOLECALCIFEROL
     Indication: Physical examination
     Dosage: 500 MILLIGRAM, TWO TIMES A DAY
     Route: 048
     Dates: start: 20190225, end: 20190625
  54. BUDESONIDE [Concomitant]
     Active Substance: BUDESONIDE
     Indication: Peripheral T-cell lymphoma unspecified
     Dosage: 3 MILLIGRAM, 3 TIMES A DAY
     Route: 048
     Dates: start: 20250219

REACTIONS (11)
  - Abdominal pain [Recovered/Resolved]
  - Cancer pain [Recovered/Resolved]
  - Blood lactate dehydrogenase increased [Not Recovered/Not Resolved]
  - Hyperuricaemia [Recovered/Resolved]
  - Asthenia [Not Recovered/Not Resolved]
  - Oedema [Not Recovered/Not Resolved]
  - Hypotension [Not Recovered/Not Resolved]
  - Dyspnoea [Not Recovered/Not Resolved]
  - Abdominal distension [Not Recovered/Not Resolved]
  - Dry mouth [Not Recovered/Not Resolved]
  - Neutrophilia [Recovered/Resolved]

NARRATIVE: CASE EVENT DATE: 20250313
